FAERS Safety Report 16954133 (Version 1)
Quarter: 2019Q4

REPORT INFORMATION
  Report Type: Spontaneous
  Country: FR (occurrence: FR)
  Receive Date: 20191023
  Receipt Date: 20191023
  Transmission Date: 20200122
  Serious: Yes (Other)
  Sender: FDA-Public Use
  Company Number: FR-BAUSCH-BL-2019-057640

PATIENT
  Age: 25 Year
  Sex: Female

DRUGS (18)
  1. METHYLPREDNISOLONE. [Suspect]
     Active Substance: METHYLPREDNISOLONE
     Indication: PSYCHOTIC DISORDER
     Route: 042
  2. AMISULPRIDE [Suspect]
     Active Substance: AMISULPRIDE
     Indication: PSYCHOTIC DISORDER
     Route: 065
  3. DIAZEPAM. [Suspect]
     Active Substance: DIAZEPAM
     Indication: PSYCHOTIC DISORDER
     Route: 030
  4. OLANZAPINE. [Suspect]
     Active Substance: OLANZAPINE
     Indication: PSYCHOTIC DISORDER
     Dosage: UP TO 20 MG/DAY
     Route: 065
  5. VALPROATE [Suspect]
     Active Substance: VALPROIC ACID
     Dosage: DOSE INCREASED UP TO 2 G/D DUE TO MANIC SYNDROME
     Route: 065
  6. LOXAPINE. [Suspect]
     Active Substance: LOXAPINE
     Dosage: REINTRODUCED AT LOWER DOSES
     Route: 030
  7. PREDNISOLONE. [Suspect]
     Active Substance: PREDNISOLONE
     Indication: PSYCHOTIC DISORDER
     Dosage: STARTING DOSE
     Route: 048
  8. LORAZEPAM. [Suspect]
     Active Substance: LORAZEPAM
     Indication: PSYCHOTIC DISORDER
     Dosage: LOW DOSE
     Route: 065
  9. VALPROATE [Suspect]
     Active Substance: VALPROIC ACID
     Indication: PSYCHOTIC DISORDER
     Route: 065
  10. DIAZEPAM. [Suspect]
     Active Substance: DIAZEPAM
     Indication: CATATONIA
  11. CYAMEMAZINE [Suspect]
     Active Substance: CYAMEMAZINE
     Indication: PSYCHOTIC DISORDER
     Dosage: HIGH DOSE OVER 3 WEEKS
     Route: 065
  12. TROPATEPINE [Suspect]
     Active Substance: TROPATEPINE
     Indication: PSYCHOTIC DISORDER
     Route: 048
  13. LOXAPINE. [Suspect]
     Active Substance: LOXAPINE
     Indication: PSYCHOTIC DISORDER
     Route: 030
  14. TROPATEPINE [Suspect]
     Active Substance: TROPATEPINE
     Dosage: REINTRODUCED AT LOWER DOSES
     Route: 030
  15. LORAZEPAM. [Suspect]
     Active Substance: LORAZEPAM
     Indication: CATATONIA
     Dosage: PSYCHOTIC SYMPTOMS REAPPEARED AFTER SWITCHING TO LORAZEPAM
     Route: 065
  16. HYDROXYCHLOROQUINE [Suspect]
     Active Substance: HYDROXYCHLOROQUINE
     Indication: PSYCHOTIC DISORDER
     Route: 048
  17. CYCLOPHOSPHAMIDE. [Suspect]
     Active Substance: CYCLOPHOSPHAMIDE
     Indication: PSYCHOTIC DISORDER
     Route: 065
  18. HALOPERIDOL. [Suspect]
     Active Substance: HALOPERIDOL
     Indication: PSYCHOTIC DISORDER
     Route: 065

REACTIONS (2)
  - Drug resistance [Unknown]
  - Drug ineffective [Unknown]
